FAERS Safety Report 24835265 (Version 3)
Quarter: 2025Q3

REPORT INFORMATION
  Report Type: Spontaneous
  Country: US (occurrence: US)
  Receive Date: 20250113
  Receipt Date: 20250711
  Transmission Date: 20251021
  Serious: No
  Sender: SHENZHEN TECHDOW PHARMACEUTICAL
  Company Number: US-Techdow-2024Techdow000244

PATIENT
  Age: 52 Year
  Sex: Female
  Weight: 70.76 kg

DRUGS (2)
  1. ENOXAPARIN SODIUM [Suspect]
     Active Substance: ENOXAPARIN SODIUM
     Indication: Thrombosis prophylaxis
     Dates: start: 20241129
  2. ENOXAPARIN SODIUM [Suspect]
     Active Substance: ENOXAPARIN SODIUM
     Indication: Thrombosis prophylaxis
     Dates: start: 20241204

REACTIONS (3)
  - Seroma [Unknown]
  - Seroma [Unknown]
  - Product quality issue [Unknown]

NARRATIVE: CASE EVENT DATE: 20241129
